FAERS Safety Report 18586411 (Version 1)
Quarter: 2020Q4

REPORT INFORMATION
  Report Type: Spontaneous
  Country: US (occurrence: US)
  Receive Date: 20201207
  Receipt Date: 20201207
  Transmission Date: 20210114
  Serious: No
  Sender: FDA-Public Use
  Company Number: US-PFIZER INC-2018510518

PATIENT
  Age: 70 Year

DRUGS (1)
  1. PREMPRO [Suspect]
     Active Substance: ESTROGENS, CONJUGATED\MEDROXYPROGESTERONE ACETATE
     Indication: MENOPAUSAL DISORDER
     Dosage: 0.625-2.5 MG ORALLY (1 TABLET ONCE A DAY 90 DAYS)
     Route: 048

REACTIONS (1)
  - Feeling abnormal [Unknown]
